FAERS Safety Report 18053277 (Version 1)
Quarter: 2020Q3

REPORT INFORMATION
  Report Type: Spontaneous
  Country: US (occurrence: US)
  Receive Date: 20200722
  Receipt Date: 20200722
  Transmission Date: 20201103
  Serious: No
  Sender: FDA-Public Use
  Company Number: US-TEVA-2020-US-1802218

PATIENT
  Sex: Male
  Weight: 89.8 kg

DRUGS (5)
  1. REMODULIN [Suspect]
     Active Substance: TREPROSTINIL
     Dosage: 0.03275 UG/KG, CONTINUING, IV DRIP
     Route: 041
  2. WARFARIN [Concomitant]
     Active Substance: WARFARIN
     Route: 065
  3. MORPHINE [Suspect]
     Active Substance: MORPHINE
     Indication: PRODUCT USED FOR UNKNOWN INDICATION
     Route: 065
  4. REMODULIN [Suspect]
     Active Substance: TREPROSTINIL
     Indication: PULMONARY ARTERIAL HYPERTENSION
     Route: 041
     Dates: start: 20151023
  5. TADALAFIL. [Concomitant]
     Active Substance: TADALAFIL
     Route: 065

REACTIONS (8)
  - Diarrhoea [Unknown]
  - Back pain [Unknown]
  - Vomiting [Unknown]
  - Nausea [Unknown]
  - Constipation [Unknown]
  - Back disorder [Unknown]
  - Product dose omission issue [Unknown]
  - Drug withdrawal syndrome [Unknown]
